FAERS Safety Report 4380579-9 (Version None)
Quarter: 2004Q2

REPORT INFORMATION
  Report Type: 
  Country: None (occurrence: None)
  Receive Date: 20040618
  Receipt Date: 20030121
  Transmission Date: 20050107
  Serious: Yes (Hospitalization, Disabling, Other)
  Sender: FDA-Public Use
  Company Number: US-MERCK-0301USA02077

PATIENT
  Age: 59 Year
  Sex: Male
  Weight: 136 kg

DRUGS (4)
  1. ASPIRIN [Concomitant]
     Indication: HEADACHE
     Route: 065
     Dates: start: 19900101
  2. VALIUM [Concomitant]
     Indication: ANXIETY
     Route: 065
     Dates: start: 19641101
  3. PAXIL [Concomitant]
     Indication: DEPRESSION
     Route: 065
     Dates: start: 19990101
  4. VIOXX [Suspect]
     Indication: ARTHRITIS
     Route: 048
     Dates: start: 20010601, end: 20020501

REACTIONS (9)
  - ATHEROSCLEROSIS [None]
  - DEPRESSION [None]
  - EMOTIONAL DISTRESS [None]
  - GUILLAIN-BARRE SYNDROME [None]
  - HEART RATE IRREGULAR [None]
  - MYOCARDIAL INFARCTION [None]
  - PARALYSIS [None]
  - RENAL FAILURE [None]
  - SLEEP APNOEA SYNDROME [None]
